FAERS Safety Report 12167273 (Version 1)
Quarter: 2016Q1

REPORT INFORMATION
  Report Type: Spontaneous
  Country: US (occurrence: None)
  Receive Date: 20160309
  Receipt Date: 20160309
  Transmission Date: 20160526
  Serious: Yes (Life-Threatening)
  Sender: FDA-Public Use
  Company Number: None

PATIENT
  Age: 58 Year
  Sex: Female
  Weight: 81.65 kg

DRUGS (7)
  1. SIMVASTATIN. [Concomitant]
     Active Substance: SIMVASTATIN
  2. ISOSORBIDE. [Concomitant]
     Active Substance: ISOSORBIDE
  3. HYDROCHLORIDE [Concomitant]
     Active Substance: UNSPECIFIED INGREDIENT
  4. LACTAID [Concomitant]
     Active Substance: LACTASE
  5. PREDNISONE 50MG ROXANE [Suspect]
     Active Substance: PREDNISONE
     Indication: REACTION TO AZO-DYES
     Route: 048
     Dates: start: 20160229, end: 20160301
  6. LISINOPRIL. [Concomitant]
     Active Substance: LISINOPRIL
  7. PREDNISONE 50MG ROXANE [Suspect]
     Active Substance: PREDNISONE
     Indication: ALLERGY PROPHYLAXIS
     Route: 048
     Dates: start: 20160229, end: 20160301

REACTIONS (2)
  - Blood glucose increased [None]
  - Drug ineffective [None]

NARRATIVE: CASE EVENT DATE: 20160301
